FAERS Safety Report 14012414 (Version 2)
Quarter: 2017Q4

REPORT INFORMATION
  Report Type: Spontaneous
  Country: FR (occurrence: FR)
  Receive Date: 20170926
  Receipt Date: 20171006
  Transmission Date: 20180321
  Serious: Yes (Other)
  Sender: FDA-Public Use
  Company Number: FR-MERCK KGAA-2027729

PATIENT
  Age: 76 Year
  Sex: Male

DRUGS (19)
  1. IPRATROPIUM BROMIDE\FENOTEROL HYDROBROMIDE [Concomitant]
     Active Substance: FENOTEROL HYDROBROMIDE\IPRATROPIUM BROMIDE
  2. NOVOTHYROX [Suspect]
     Active Substance: LEVOTHYROXINE SODIUM
     Indication: PRODUCT USED FOR UNKNOWN INDICATION
     Route: 048
     Dates: start: 201706
  3. EZETROL [Concomitant]
     Active Substance: EZETIMIBE
  4. RAMIPRIL. [Concomitant]
     Active Substance: RAMIPRIL
  5. LASILIX [Concomitant]
     Active Substance: FUROSEMIDE
  6. CRESTOR [Concomitant]
     Active Substance: ROSUVASTATIN CALCIUM
  7. SPIRIVA [Concomitant]
     Active Substance: TIOTROPIUM BROMIDE MONOHYDRATE
  8. COLIMYCINE [Concomitant]
     Active Substance: COLISTIMETHATE SODIUM
  9. CORTANCYL [Concomitant]
     Active Substance: PREDNISONE
  10. SINTROM [Concomitant]
     Active Substance: ACENOCOUMAROL
  11. MOPRAL [Concomitant]
     Active Substance: OMEPRAZOLE SODIUM
  12. PREDNISONE. [Concomitant]
     Active Substance: PREDNISONE
  13. LACTULOSE. [Concomitant]
     Active Substance: LACTULOSE
  14. SKENAN [Concomitant]
     Active Substance: MORPHINE SULFATE
  15. CALCIDOSE [Concomitant]
     Active Substance: CALCIUM CARBONATE
  16. PLAVIX [Concomitant]
     Active Substance: CLOPIDOGREL BISULFATE
  17. MELAXOSE [Concomitant]
     Active Substance: LACTULOSE\PARAFFIN
  18. DIFFU K [Concomitant]
     Active Substance: POTASSIUM CHLORIDE
  19. ZITHROMAX [Concomitant]
     Active Substance: AZITHROMYCIN DIHYDRATE

REACTIONS (8)
  - Somnolence [Unknown]
  - Decreased appetite [Unknown]
  - Weight decreased [Unknown]
  - Headache [Unknown]
  - Fatigue [Unknown]
  - Arthralgia [Unknown]
  - Personality change [Unknown]
  - Blood thyroid stimulating hormone decreased [Unknown]

NARRATIVE: CASE EVENT DATE: 20170710
